FAERS Safety Report 10783872 (Version 1)
Quarter: 2015Q1

REPORT INFORMATION
  Report Type: Other
  Country: US (occurrence: US)
  Receive Date: 20150210
  Receipt Date: 20150210
  Transmission Date: 20150721
  Serious: Yes (Death)
  Sender: FDA-Public Use
  Company Number: US-FRI-1000074427

PATIENT
  Age: 39 Year
  Sex: Female

DRUGS (6)
  1. CITALOPRAM [Suspect]
     Active Substance: CITALOPRAM HYDROBROMIDE
  2. BUPROPION [Suspect]
     Active Substance: BUPROPION
  3. COCAINE [Suspect]
     Active Substance: COCAINE
  4. TRAZODONE [Suspect]
     Active Substance: TRAZODONE HYDROCHLORIDE
  5. HEROIN [Suspect]
     Active Substance: DIACETYLMORPHINE
  6. ETHANOL [Suspect]
     Active Substance: ALCOHOL

REACTIONS (1)
  - Drug abuse [Fatal]
